FAERS Safety Report 21494304 (Version 1)
Quarter: 2022Q4

REPORT INFORMATION
  Report Type: Report from Study
  Country: US (occurrence: US)
  Receive Date: 20221021
  Receipt Date: 20221021
  Transmission Date: 20230113
  Serious: No
  Sender: FDA-Public Use
  Company Number: US-ABBVIE-4166712

PATIENT
  Sex: Female

DRUGS (2)
  1. IMBRUVICA [Suspect]
     Active Substance: IBRUTINIB
     Indication: B-cell lymphoma
     Route: 048
     Dates: start: 2022
  2. IMBRUVICA [Suspect]
     Active Substance: IBRUTINIB
     Indication: B-cell lymphoma
     Route: 048
     Dates: start: 20220608, end: 20220630

REACTIONS (2)
  - Fatigue [Unknown]
  - Muscle spasms [Unknown]
